FAERS Safety Report 7022487-0 (Version None)
Quarter: 2010Q3

REPORT INFORMATION
  Report Type: 
  Country: None (occurrence: None)
  Receive Date: 20100930
  Receipt Date: 20100920
  Transmission Date: 20110219
  Serious: Yes (Other)
  Sender: FDA-Public Use
  Company Number: DE-MILLENNIUM PHARMACEUTICALS, INC.-2010-04786

PATIENT

DRUGS (3)
  1. VELCADE [Suspect]
     Indication: MULTIPLE MYELOMA
     Dosage: 1.3 MG/M2, UNK
     Route: 042
  2. ADRIAMYCIN PFS [Concomitant]
     Indication: MULTIPLE MYELOMA
     Dosage: 9 MG/M2, UNK
  3. DEXAMETHASONE [Concomitant]
     Indication: MULTIPLE MYELOMA
     Dosage: 40 MG, UNK

REACTIONS (5)
  - ATRIAL FIBRILLATION [None]
  - FATIGUE [None]
  - HYPERHIDROSIS [None]
  - MUSCULAR WEAKNESS [None]
  - POLYNEUROPATHY [None]
